FAERS Safety Report 14475267 (Version 1)
Quarter: 2018Q1

REPORT INFORMATION
  Report Type: Spontaneous
  Country: US (occurrence: US)
  Receive Date: 20180131
  Receipt Date: 20180131
  Transmission Date: 20180509
  Serious: Yes (Death)
  Sender: FDA-Public Use
  Company Number: None

PATIENT
  Age: 62 Year
  Sex: Male

DRUGS (2)
  1. TORISEL [Suspect]
     Active Substance: TEMSIROLIMUS
     Indication: EMBOLISM
     Dosage: OTHER FREQUENCY:WEEKLY;?
     Route: 042
  2. TORISEL [Suspect]
     Active Substance: TEMSIROLIMUS
     Indication: PELVIC VENOUS THROMBOSIS
     Dosage: OTHER FREQUENCY:WEEKLY;?
     Route: 042

REACTIONS (1)
  - Death [None]
